FAERS Safety Report 4474604-4 (Version None)
Quarter: 2004Q4

REPORT INFORMATION
  Report Type: 
  Country: None (occurrence: None)
  Receive Date: 20041012
  Receipt Date: 20040913
  Transmission Date: 20050328
  Serious: Yes (Hospitalization)
  Sender: FDA-Public Use
  Company Number: 2004-DE-04821DE

PATIENT
  Age: 21 Year
  Sex: Male

DRUGS (2)
  1. ATROVENT INHALETTEN (IPRATROPIUM BROMIDE) (KAI) [Suspect]
     Dosage: PO
     Route: 048
  2. THEOMYLLIN STADA 200 RETARD (TA) [Suspect]
     Dosage: 4000 MG (200 MG, 1 X 20 TABLETS) PO
     Route: 048

REACTIONS (4)
  - DRUG ABUSER [None]
  - MULTIPLE DRUG OVERDOSE [None]
  - SUICIDE ATTEMPT [None]
  - VOMITING [None]
